FAERS Safety Report 20635771 (Version 1)
Quarter: 2022Q1

REPORT INFORMATION
  Report Type: Report from Study
  Country: DE (occurrence: None)
  Receive Date: 20220325
  Receipt Date: 20220325
  Transmission Date: 20220423
  Serious: No
  Sender: FDA-Public Use
  Company Number: DE-Spark Therapeutics, Inc.-DE-SPK-21-00079

PATIENT
  Age: 16 Year
  Sex: Female
  Weight: 55 kg

DRUGS (8)
  1. VORETIGENE NEPARVOVEC [Suspect]
     Active Substance: VORETIGENE NEPARVOVEC
     Indication: Retinal dystrophy
     Dates: start: 20210811, end: 20210811
  2. VORETIGENE NEPARVOVEC [Suspect]
     Active Substance: VORETIGENE NEPARVOVEC
     Indication: RPE65 gene mutation
  3. VORETIGENE NEPARVOVEC [Suspect]
     Active Substance: VORETIGENE NEPARVOVEC
     Indication: Leber^s congenital amaurosis
  4. VORETIGENE NEPARVOVEC [Suspect]
     Active Substance: VORETIGENE NEPARVOVEC
     Indication: Retinal dystrophy
     Dates: start: 20210811, end: 20210811
  5. VORETIGENE NEPARVOVEC [Suspect]
     Active Substance: VORETIGENE NEPARVOVEC
     Indication: RPE65 gene mutation
  6. VORETIGENE NEPARVOVEC [Suspect]
     Active Substance: VORETIGENE NEPARVOVEC
     Indication: Leber^s congenital amaurosis
  7. CORTISONE [Concomitant]
     Active Substance: CORTISONE
     Indication: Product used for unknown indication
     Dates: start: 20210808, end: 20210824
  8. PREDNISONE [Concomitant]
     Active Substance: PREDNISONE
     Indication: Product used for unknown indication
     Dates: start: 20210811

REACTIONS (2)
  - Retinal degeneration [Not Recovered/Not Resolved]
  - Retinal tear [Recovered/Resolved]

NARRATIVE: CASE EVENT DATE: 20210811
